FAERS Safety Report 19849884 (Version 1)
Quarter: 2021Q3

REPORT INFORMATION
  Report Type: Spontaneous
  Country: US (occurrence: US)
  Receive Date: 20210917
  Receipt Date: 20210917
  Transmission Date: 20211014
  Serious: No
  Sender: FDA-Public Use
  Company Number: US-CATALYST PHARMACEUTICALS, INC-2021CAT00237

PATIENT
  Age: 52 Year
  Sex: Female
  Weight: 65.76 kg

DRUGS (9)
  1. BIOTIN [Concomitant]
     Active Substance: BIOTIN
     Dosage: 10000 ?G, 1X/DAY
  2. FIRDAPSE [Suspect]
     Active Substance: AMIFAMPRIDINE PHOSPHATE
     Dosage: 20 MG, 3X/DAY
     Route: 048
     Dates: start: 2021
  3. ADULT MULTIVITAMIN [Concomitant]
     Dosage: 1 TABLET, 1X/DAY
  4. WOMENS ROGAINE [Concomitant]
     Active Substance: MINOXIDIL
     Dosage: UNK, AS NEEDED
  5. COLLAGEN ULTRA [Concomitant]
     Dosage: 1 TABLET, 1X/DAY
  6. OMEGA 3 [Concomitant]
     Active Substance: OMEGA-3 FATTY ACIDS
     Dosage: 1000 MG, 1X/DAY
  7. FIRDAPSE [Suspect]
     Active Substance: AMIFAMPRIDINE PHOSPHATE
     Indication: MYASTHENIC SYNDROME
     Dosage: 10 MG, 3X/DAY
     Route: 048
     Dates: start: 20210529, end: 2021
  8. VITAMIN B12 ER [Concomitant]
     Dosage: 1000 ?G, 1X/DAY
  9. MAGNESIUM GLUCONATE [Concomitant]
     Active Substance: MAGNESIUM GLUCONATE
     Dosage: 500 MG, 1X/DAY

REACTIONS (12)
  - Drug ineffective [Recovering/Resolving]
  - Dry mouth [Not Recovered/Not Resolved]
  - Heat exhaustion [Not Recovered/Not Resolved]
  - Respiration abnormal [Not Recovered/Not Resolved]
  - Alopecia [Not Recovered/Not Resolved]
  - Paraesthesia [Recovered/Resolved]
  - Hypoaesthesia oral [Not Recovered/Not Resolved]
  - Dizziness [Recovering/Resolving]
  - Unevaluable event [Not Recovered/Not Resolved]
  - Dysgeusia [Recovering/Resolving]
  - Paraesthesia oral [Not Recovered/Not Resolved]
  - Constipation [Not Recovered/Not Resolved]

NARRATIVE: CASE EVENT DATE: 2021
